FAERS Safety Report 5643736-7 (Version None)
Quarter: 2008Q1

REPORT INFORMATION
  Report Type: 
  Country: None (occurrence: None)
  Receive Date: 20080226
  Receipt Date: 20080220
  Transmission Date: 20080703
  Serious: Yes (Hospitalization)
  Sender: FDA-Public Use
  Company Number: E2020-02327-SPO-US

PATIENT
  Age: 53 Year
  Sex: Female

DRUGS (4)
  1. ARICEPT [Suspect]
     Indication: AMNESIA
     Dosage: 5 MG, 1 IN 1 D, ORAL
     Route: 048
     Dates: start: 20071101, end: 20080129
  2. SEROQUEL [Concomitant]
  3. SYNTHROID [Concomitant]
  4. NORVASC [Concomitant]

REACTIONS (2)
  - COLITIS ISCHAEMIC [None]
  - HYPERTENSION [None]
